FAERS Safety Report 8483525-1 (Version None)
Quarter: 2012Q3

REPORT INFORMATION
  Report Type: 
  Country: None (occurrence: None)
  Receive Date: 20120702
  Receipt Date: 20120628
  Transmission Date: 20120928
  Serious: Yes (Other)
  Sender: FDA-Public Use
  Company Number: US-MERCK-1206USA05068

PATIENT
  Sex: Female

DRUGS (4)
  1. FOSAMAX [Suspect]
     Route: 048
     Dates: start: 20070101, end: 20100101
  2. IBANDRONATE SODIUM [Suspect]
     Route: 048
     Dates: start: 20070101, end: 20100101
  3. FOSAMAX [Suspect]
     Route: 048
     Dates: start: 20070101, end: 20100101
  4. BONIVA [Suspect]
     Route: 048
     Dates: start: 20070101, end: 20100101

REACTIONS (2)
  - BONE DISORDER [None]
  - TIBIA FRACTURE [None]
